FAERS Safety Report 5035128-9 (Version None)
Quarter: 2006Q2

REPORT INFORMATION
  Report Type: 
  Country: None (occurrence: None)
  Receive Date: 20060627
  Receipt Date: 20051207
  Transmission Date: 20061013
  Serious: Yes (Other)
  Sender: FDA-Public Use
  Company Number: PHNU2005DE04038

PATIENT
  Age: 48 Year
  Sex: Female
  Weight: 44 kg

DRUGS (4)
  1. ANASTROZOLE [Concomitant]
     Dosage: 1 MG, QD
     Route: 048
     Dates: start: 20050901
  2. ZOMETA [Suspect]
     Indication: BREAST CANCER METASTATIC
     Dosage: 4 MG, QMO
     Route: 042
     Dates: start: 20030717
  3. TAXOTERE [Concomitant]
     Indication: BREAST CANCER METASTATIC
     Dosage: 35 MG/M2, QW
     Route: 065
     Dates: end: 20050901
  4. DEXAMETHASONE TAB [Concomitant]
     Dosage: 20 MG, QW
     Route: 042
     Dates: end: 20050901

REACTIONS (3)
  - OSTEITIS [None]
  - OSTEONECROSIS [None]
  - TOOTH EXTRACTION [None]
